FAERS Safety Report 8966809 (Version 1)
Quarter: 2012Q4

REPORT INFORMATION
  Report Type: 
  Country: AU (occurrence: AU)
  Receive Date: 20121214
  Receipt Date: 20121214
  Transmission Date: 20130627
  Serious: Yes (Hospitalization)
  Sender: FDA-Public Use
  Company Number: AU-MERCK-1212AUS004127

PATIENT
  Age: 63 Year
  Sex: Female
  Weight: 79 kg

DRUGS (3)
  1. SITAGLIPTIN PHOSPHATE [Suspect]
     Dosage: 100 mg, qd
     Route: 048
     Dates: start: 20120115, end: 20120615
  2. METFORMIN HYDROCHLORIDE [Suspect]
     Route: 065
  3. ATORVASTATIN [Concomitant]

REACTIONS (1)
  - Eosinophilic fasciitis [Not Recovered/Not Resolved]
